FAERS Safety Report 15750600 (Version 1)
Quarter: 2018Q4

REPORT INFORMATION
  Report Type: Spontaneous
  Country: US (occurrence: US)
  Receive Date: 20181206
  Receipt Date: 20181206
  Transmission Date: 20190205
  Serious: Yes (Disabling, Other)
  Sender: FDA-Public Use
  Company Number: None

PATIENT
  Age: 19 Year
  Sex: Male
  Weight: 58.05 kg

DRUGS (8)
  1. FLONAZE [Concomitant]
  2. LUVOX [Concomitant]
     Active Substance: FLUVOXAMINE MALEATE
  3. ANAFRANIL [Concomitant]
     Active Substance: CLOMIPRAMINE HYDROCHLORIDE
  4. BANOPHEN [Concomitant]
     Active Substance: DIPHENHYDRAMINE HYDROCHLORIDE
  5. PROPANOLOL [Concomitant]
     Active Substance: PROPRANOLOL HYDROCHLORIDE
  6. POLYETHYLENE GLYCOL 3350. [Suspect]
     Active Substance: POLYETHYLENE GLYCOL 3350
     Indication: CONSTIPATION
     Dosage: ?          QUANTITY:17 GRAMS;?
     Route: 048
  7. ALBUTEROL. [Concomitant]
     Active Substance: ALBUTEROL
  8. CETERIZINE [Concomitant]
     Active Substance: CETIRIZINE HYDROCHLORIDE

REACTIONS (3)
  - Aggression [None]
  - Antisocial behaviour [None]
  - Underweight [None]

NARRATIVE: CASE EVENT DATE: 20090101
